FAERS Safety Report 21212562 (Version 1)
Quarter: 2022Q3

REPORT INFORMATION
  Report Type: Spontaneous
  Country: CN (occurrence: CN)
  Receive Date: 20220815
  Receipt Date: 20220815
  Transmission Date: 20221026
  Serious: Yes (Life-Threatening)
  Sender: FDA-Public Use
  Company Number: CN-PFIZER INC-PV202200042701

PATIENT
  Age: 64 Year
  Sex: Female
  Weight: 50 kg

DRUGS (1)
  1. LIPITOR [Suspect]
     Active Substance: ATORVASTATIN CALCIUM
     Indication: Arteriosclerosis coronary artery
     Dosage: 20 MG, 1X/DAY
     Route: 048
     Dates: start: 20220707, end: 20220721

REACTIONS (1)
  - Hepatic function abnormal [Unknown]

NARRATIVE: CASE EVENT DATE: 20220715
